FAERS Safety Report 21160309 (Version 7)
Quarter: 2023Q2

REPORT INFORMATION
  Report Type: Spontaneous
  Country: CA (occurrence: CA)
  Receive Date: 20220802
  Receipt Date: 20230628
  Transmission Date: 20230722
  Serious: Yes (Other)
  Sender: FDA-Public Use
  Company Number: CA-BAUSCH-BL-2022-018778

PATIENT
  Age: 55 Year
  Sex: Female
  Weight: 136 kg

DRUGS (14)
  1. CONTRAVE [Suspect]
     Active Substance: BUPROPION HYDROCHLORIDE\NALTREXONE HYDROCHLORIDE
     Indication: Weight control
     Dosage: 90/8 MG (1 DOSAGE FORMS,1 IN 12 HR)
     Route: 065
  2. CONTRAVE [Suspect]
     Active Substance: BUPROPION HYDROCHLORIDE\NALTREXONE HYDROCHLORIDE
     Dosage: 90/8 MG (1 DOSAGE FORMS,1 IN 12 HR)
     Route: 048
  3. CONTRAVE [Suspect]
     Active Substance: BUPROPION HYDROCHLORIDE\NALTREXONE HYDROCHLORIDE
     Dosage: 90/8 MG (1 IN 12 HR)
     Route: 048
  4. CONTRAVE [Suspect]
     Active Substance: BUPROPION HYDROCHLORIDE\NALTREXONE HYDROCHLORIDE
     Dosage: 90/8 MG (1 DOSAGE FORMS,1 IN 12 HR)
     Route: 048
  5. CONTRAVE [Suspect]
     Active Substance: BUPROPION HYDROCHLORIDE\NALTREXONE HYDROCHLORIDE
     Dosage: 90/8 MG (2 DOSAGE FORMS,1 IN 12 HR)
     Route: 048
  6. CONTRAVE [Suspect]
     Active Substance: BUPROPION HYDROCHLORIDE\NALTREXONE HYDROCHLORIDE
     Dosage: 90/8 MG (1 DOSAGE FORMS,1 IN 1 D)
     Route: 048
  7. CONTRAVE [Suspect]
     Active Substance: BUPROPION HYDROCHLORIDE\NALTREXONE HYDROCHLORIDE
     Dosage: 90/8 MG (1 IN 12 HR)
     Route: 048
  8. CONTRAVE [Suspect]
     Active Substance: BUPROPION HYDROCHLORIDE\NALTREXONE HYDROCHLORIDE
     Dosage: 90/8 MG (1 DOSAGE FORMS,1 IN 1 D)
     Route: 048
  9. COMIRNATY [Suspect]
     Active Substance: TOZINAMERAN
     Indication: COVID-19 immunisation
     Dosage: UNK
     Route: 030
  10. CITALOPRAM [Concomitant]
     Active Substance: CITALOPRAM HYDROBROMIDE
     Indication: Anxiety
     Dosage: 20 MG,1 IN 1 D
     Route: 048
  11. CITALOPRAM [Concomitant]
     Active Substance: CITALOPRAM HYDROBROMIDE
     Dosage: 40 MG,1 IN 1 D
     Route: 048
  12. VITAMIN D NOS [Concomitant]
     Active Substance: VITAMIN D NOS
     Indication: Vitamin supplementation
     Dosage: 40 MG,1 IN 1 D
     Route: 048
  13. VITAMIN D NOS [Concomitant]
     Active Substance: VITAMIN D NOS
     Dosage: 20 MG, 1 IN 1 D
     Route: 048
  14. VITAMIN D NOS [Concomitant]
     Active Substance: VITAMIN D NOS
     Dosage: 2000 IU,1 IN 1 D
     Route: 048

REACTIONS (22)
  - Abdominal distension [Recovered/Resolved]
  - Uterine leiomyoma [Recovered/Resolved]
  - Uterine haemorrhage [Recovered/Resolved]
  - Uterine cancer [Recovered/Resolved]
  - Sleep terror [Recovered/Resolved]
  - Sleep apnoea syndrome [Recovered/Resolved]
  - Psychiatric symptom [Recovered/Resolved]
  - Depression suicidal [Recovered/Resolved]
  - Pyrexia [Recovered/Resolved]
  - Chills [Recovered/Resolved]
  - Abnormal dreams [Recovered/Resolved]
  - Constipation [Recovered/Resolved]
  - Dehydration [Recovered/Resolved]
  - Dry mouth [Recovered/Resolved]
  - Headache [Recovered/Resolved]
  - Hot flush [Recovered/Resolved]
  - Hyperhidrosis [Recovered/Resolved]
  - Middle insomnia [Recovered/Resolved]
  - Nausea [Recovered/Resolved]
  - Vomiting [Recovered/Resolved]
  - Insomnia [Not Recovered/Not Resolved]
  - Intentional product use issue [Recovered/Resolved]
